FAERS Safety Report 7978289-1 (Version None)
Quarter: 2011Q4

REPORT INFORMATION
  Report Type: 
  Country: None (occurrence: None)
  Receive Date: 20111214
  Receipt Date: 20111207
  Transmission Date: 20120403
  Serious: Yes (Other)
  Sender: FDA-Public Use
  Company Number: DE-PFIZER INC-2011078198

PATIENT
  Age: 63 Year
  Sex: Male
  Weight: 73 kg

DRUGS (2)
  1. SIMVASTATIN [Concomitant]
     Dosage: 1 DF, 1X/DAY
     Route: 048
  2. RAMIPRIL [Suspect]
     Indication: HYPERTENSION
     Dosage: 5 MG EVERY MORNING ONCE DAILY (1-0-0)
     Route: 048
     Dates: start: 20100701, end: 20101201

REACTIONS (2)
  - FROSTBITE [None]
  - RAYNAUD'S PHENOMENON [None]
